FAERS Safety Report 4967089-2 (Version None)
Quarter: 2006Q2

REPORT INFORMATION
  Report Type: 
  Country: None (occurrence: None)
  Receive Date: 20060403
  Receipt Date: 20060324
  Transmission Date: 20061013
  Serious: Yes (Hospitalization, Other)
  Sender: FDA-Public Use
  Company Number: 8015839

PATIENT

DRUGS (1)
  1. KEPPRA [Suspect]
     Dosage: PO
     Route: 048

REACTIONS (1)
  - NEUTROPENIA [None]
